FAERS Safety Report 9553874 (Version 1)
Quarter: 2013Q3

REPORT INFORMATION
  Report Type: Spontaneous
  Country: US (occurrence: None)
  Receive Date: 20130815
  Receipt Date: 20130815
  Transmission Date: 20140515
  Serious: Yes (Other)
  Sender: FDA-Public Use
  Company Number: ADR-2012-01225

PATIENT
  Sex: Female

DRUGS (3)
  1. LIORESAL INTRATHECAL (BACLOFEN INJECTION) [Suspect]
     Indication: PARAPARESIS
  2. LIORESAL INTRATHECAL (BACLOFEN INJECTION) [Suspect]
     Indication: MUSCLE SPASTICITY
  3. DILAUDID (HYDROMORPHONE) [Concomitant]

REACTIONS (3)
  - Muscle rigidity [None]
  - Dyspnoea [None]
  - Pain [None]
